FAERS Safety Report 11260463 (Version 1)
Quarter: 2015Q3

REPORT INFORMATION
  Report Type: Spontaneous
  Country: US (occurrence: US)
  Receive Date: 20150710
  Receipt Date: 20150710
  Transmission Date: 20151125
  Serious: No
  Sender: FDA-Public Use
  Company Number: US-PURDUE-USA-2014-0119126

PATIENT
  Sex: Female

DRUGS (2)
  1. NUCYNTA [Concomitant]
     Active Substance: TAPENTADOL HYDROCHLORIDE
     Indication: BREAKTHROUGH PAIN
     Dosage: 75 MG, UNK
  2. BUTRANS [Suspect]
     Active Substance: BUPRENORPHINE
     Indication: BACK PAIN
     Dosage: 20 MCG/HR, WEEKLY
     Route: 062
     Dates: start: 201409

REACTIONS (1)
  - Application site pruritus [Unknown]
